FAERS Safety Report 15406534 (Version 2)
Quarter: 2018Q4

REPORT INFORMATION
  Report Type: Spontaneous
  Country: GB (occurrence: GB)
  Receive Date: 20180920
  Receipt Date: 20181130
  Transmission Date: 20190204
  Serious: Yes (Death, Other)
  Sender: FDA-Public Use
  Company Number: DE-ALKEM LABORATORIES LIMITED-DE-ALKEM-2018-07422

PATIENT
  Age: 25 Year
  Sex: Male

DRUGS (1)
  1. METFORMIN HYDROCHLORIDE. [Suspect]
     Active Substance: METFORMIN HYDROCHLORIDE
     Indication: PRODUCT USED FOR UNKNOWN INDICATION
     Dosage: UNK, INGESTION OF UNKNOWN NUMBER OF TABLETS
     Route: 048

REACTIONS (8)
  - Multiple organ dysfunction syndrome [Fatal]
  - Overdose [Fatal]
  - Circulatory collapse [Unknown]
  - Depressed level of consciousness [Unknown]
  - Confusional state [Unknown]
  - Metabolic acidosis [Unknown]
  - Hyperventilation [Unknown]
  - Agitation [Unknown]
